FAERS Safety Report 7976246-2 (Version None)
Quarter: 2011Q4

REPORT INFORMATION
  Report Type: 
  Country: None (occurrence: None)
  Receive Date: 20111213
  Receipt Date: 20111014
  Transmission Date: 20120403
  Serious: Yes (Other)
  Sender: FDA-Public Use
  Company Number: US-AMGEN-USASP2011053234

PATIENT
  Sex: Female

DRUGS (1)
  1. ENBREL [Suspect]
     Indication: RHEUMATOID ARTHRITIS
     Dosage: 50 MG, QWK
     Dates: start: 20070808

REACTIONS (9)
  - INFECTED BITES [None]
  - FOOT FRACTURE [None]
  - INJECTION SITE HAEMATOMA [None]
  - STAPHYLOCOCCAL INFECTION [None]
  - INJECTION SITE URTICARIA [None]
  - SINUSITIS [None]
  - URTICARIA [None]
  - INJECTION SITE HAEMORRHAGE [None]
  - INJECTION SITE EXTRAVASATION [None]
